FAERS Safety Report 14452929 (Version 1)
Quarter: 2018Q1

REPORT INFORMATION
  Report Type: Spontaneous
  Country: US (occurrence: US)
  Receive Date: 20180129
  Receipt Date: 20180129
  Transmission Date: 20180509
  Serious: No
  Sender: FDA-Public Use
  Company Number: US-TEVA-812381USA

PATIENT
  Sex: Female

DRUGS (1)
  1. FLUDROCORTISONE ACETATE. [Suspect]
     Active Substance: FLUDROCORTISONE ACETATE

REACTIONS (4)
  - Tremor [Unknown]
  - Drug ineffective [Unknown]
  - Muscular weakness [Unknown]
  - Pollakiuria [Unknown]

NARRATIVE: CASE EVENT DATE: 20170927
